FAERS Safety Report 5175626-0 (Version None)
Quarter: 2006Q4

REPORT INFORMATION
  Report Type: 
  Country: None (occurrence: None)
  Receive Date: 20061215
  Receipt Date: 20060630
  Transmission Date: 20070319
  Serious: No
  Sender: FDA-Public Use
  Company Number: US-AMGEN-KDL184907

PATIENT
  Sex: Male
  Weight: 70.8 kg

DRUGS (3)
  1. ENBREL [Suspect]
     Indication: PSORIATIC ARTHROPATHY
     Route: 058
     Dates: start: 20060516, end: 20060606
  2. ENBREL [Suspect]
     Indication: PSORIASIS
  3. CLOBETASOL PROPIONATE [Concomitant]
     Route: 061
     Dates: start: 20050606

REACTIONS (8)
  - ACNE [None]
  - BRONCHITIS [None]
  - CONDITION AGGRAVATED [None]
  - FATIGUE [None]
  - HYPERSENSITIVITY [None]
  - PSORIASIS [None]
  - PSORIATIC ARTHROPATHY [None]
  - URTICARIA [None]
